FAERS Safety Report 4415001-7 (Version None)
Quarter: 2004Q3

REPORT INFORMATION
  Report Type: 
  Country: None (occurrence: None)
  Receive Date: 20040726
  Receipt Date: 20040713
  Transmission Date: 20050211
  Serious: Yes (Other)
  Sender: FDA-Public Use
  Company Number: 200410558BCA

PATIENT
  Sex: Male

DRUGS (24)
  1. PLASBUMIN-5 [Suspect]
     Indication: HEPATITIS POST TRANSFUSION
     Dosage: INTRAVENOUS
     Route: 042
     Dates: start: 19890615
  2. RBC (0+) (RED BLOOD CELLS) [Suspect]
     Dosage: SEE IMAGE
     Route: 042
     Dates: start: 19831230
  3. RBC (0+) (RED BLOOD CELLS) [Suspect]
     Dosage: SEE IMAGE
     Route: 042
     Dates: start: 19831230
  4. RBC (0+) (RED BLOOD CELLS) [Suspect]
     Dosage: SEE IMAGE
     Route: 042
     Dates: start: 19890614
  5. RBC (0+) (RED BLOOD CELLS) [Suspect]
     Dosage: SEE IMAGE
     Route: 042
     Dates: start: 19890614
  6. RBC (0+) (RED BLOOD CELLS) [Suspect]
     Dosage: SEE IMAGE
     Route: 042
     Dates: start: 19890615
  7. RBC (0+) (RED BLOOD CELLS) [Suspect]
     Dosage: SEE IMAGE
     Route: 042
     Dates: start: 19890615
  8. RBC (0+) (RED BLOOD CELLS) [Suspect]
  9. RBC (0+) (RED BLOOD CELLS) [Suspect]
  10. RBC (0+) (RED BLOOD CELLS) [Suspect]
  11. RBC (0+) (RED BLOOD CELLS) [Suspect]
  12. RBC (0+) (RED BLOOD CELLS) [Suspect]
  13. FFP (0) (PLASMA PROTEIN FRACTION (HUMAN )) [Suspect]
     Dosage: SEE IMAGE
     Route: 042
     Dates: start: 19890614
  14. FFP (0) (PLASMA PROTEIN FRACTION (HUMAN )) [Suspect]
     Dosage: SEE IMAGE
     Route: 042
     Dates: start: 19890614
  15. FFP (0) (PLASMA PROTEIN FRACTION (HUMAN )) [Suspect]
     Dosage: SEE IMAGE
     Route: 042
     Dates: start: 19890614
  16. FFP (0) (PLASMA PROTEIN FRACTION (HUMAN )) [Suspect]
     Dosage: SEE IMAGE
     Route: 042
     Dates: start: 19890614
  17. FFP (0) (PLASMA PROTEIN FRACTION (HUMAN )) [Suspect]
  18. FFP (0) (PLASMA PROTEIN FRACTION (HUMAN )) [Suspect]
  19. FFP (0) (PLASMA PROTEIN FRACTION (HUMAN )) [Suspect]
  20. CRYO (A) (PLASMA PROTEIN RACTION (HUMAN FRACTION)) [Suspect]
     Dosage: SEE IMAGE
     Route: 042
     Dates: start: 19890614
  21. CRYO (A) (PLASMA PROTEIN RACTION (HUMAN FRACTION)) [Suspect]
     Dosage: SEE IMAGE
     Route: 042
     Dates: start: 19890614
  22. CRYO (A) (PLASMA PROTEIN RACTION (HUMAN FRACTION)) [Suspect]
     Dosage: SEE IMAGE
     Route: 042
     Dates: start: 19890614
  23. CRYO (A) (PLASMA PROTEIN RACTION (HUMAN FRACTION)) [Suspect]
  24. CRYO (A) (PLASMA PROTEIN RACTION (HUMAN FRACTION)) [Suspect]

REACTIONS (1)
  - HEPATITIS C VIRUS [None]
